FAERS Safety Report 15549689 (Version 1)
Quarter: 2018Q4

REPORT INFORMATION
  Report Type: Spontaneous
  Country: US (occurrence: US)
  Receive Date: 20181024
  Receipt Date: 20181024
  Transmission Date: 20190205
  Serious: Yes (Other)
  Sender: FDA-Public Use
  Company Number: None

PATIENT
  Age: 35 Year
  Sex: Female
  Weight: 90.9 kg

DRUGS (3)
  1. TOPIRAMATE. [Concomitant]
     Active Substance: TOPIRAMATE
     Dates: start: 20181004, end: 20181013
  2. TOPIRIMATE [Suspect]
     Active Substance: TOPIRAMATE
     Indication: BODY MASS INDEX INCREASED
     Route: 048
     Dates: start: 20181004, end: 20181013
  3. TOPIRIMATE [Suspect]
     Active Substance: TOPIRAMATE
     Indication: MIGRAINE
     Route: 048
     Dates: start: 20181004, end: 20181013

REACTIONS (2)
  - Visual impairment [None]
  - Angle closure glaucoma [None]

NARRATIVE: CASE EVENT DATE: 20181013
